FAERS Safety Report 13794775 (Version 2)
Quarter: 2017Q3

REPORT INFORMATION
  Report Type: Spontaneous
  Country: US (occurrence: US)
  Receive Date: 20170726
  Receipt Date: 20170915
  Transmission Date: 20171127
  Serious: No
  Sender: FDA-Public Use
  Company Number: US-PFIZER INC-2017321930

PATIENT
  Age: 62 Year
  Sex: Female
  Weight: 88.45 kg

DRUGS (1)
  1. METHOTREXATE SODIUM. [Suspect]
     Active Substance: METHOTREXATE SODIUM
     Indication: RHEUMATOID ARTHRITIS
     Dosage: 5 MG, UNK (5 MG 8 PILLS ONE TIME A WEEK)
     Dates: start: 2005, end: 201706

REACTIONS (1)
  - Stomatitis [Unknown]
